FAERS Safety Report 10418155 (Version 2)
Quarter: 2014Q3

REPORT INFORMATION
  Report Type: Report from Study
  Country: EG (occurrence: EG)
  Receive Date: 20140829
  Receipt Date: 20140908
  Transmission Date: 20150326
  Serious: Yes (Death, Other)
  Sender: FDA-Public Use
  Company Number: EG-SA-2014SA117557

PATIENT
  Age: 80 Year
  Sex: Female

DRUGS (3)
  1. STUGERON [Concomitant]
     Active Substance: CINNARIZINE
     Indication: CARDIOVASCULAR DISORDER
  2. LANTUS [Suspect]
     Active Substance: INSULIN GLARGINE
     Indication: TYPE 2 DIABETES MELLITUS
     Route: 058
     Dates: start: 20130107
  3. BETASERC [Concomitant]
     Active Substance: BETAHISTINE
     Indication: CARDIOVASCULAR DISORDER

REACTIONS (4)
  - Dementia Alzheimer^s type [Unknown]
  - Cerebrovascular accident [Fatal]
  - Depression [Unknown]
  - Blood glucose increased [Unknown]

NARRATIVE: CASE EVENT DATE: 20131201
